FAERS Safety Report 8938383 (Version 1)
Quarter: 2012Q4

REPORT INFORMATION
  Report Type: 
  Country: US (occurrence: US)
  Receive Date: 20121203
  Receipt Date: 20121203
  Transmission Date: 20130627
  Serious: Yes (Hospitalization)
  Sender: FDA-Public Use
  Company Number: PHEH2012US023463

PATIENT
  Sex: Female

DRUGS (1)
  1. TASIGNA [Suspect]
     Indication: NEOPLASM MALIGNANT
     Dosage: 200 mg/day
     Route: 048
     Dates: start: 20100928

REACTIONS (2)
  - Swelling [Recovered/Resolved]
  - Cardiac failure congestive [Recovered/Resolved]
